FAERS Safety Report 9354573 (Version 1)
Quarter: 2013Q2

REPORT INFORMATION
  Report Type: Spontaneous
  Country: GB (occurrence: GB)
  Receive Date: 20130618
  Receipt Date: 20130618
  Transmission Date: 20140414
  Serious: Yes (Other)
  Sender: FDA-Public Use
  Company Number: GB-UCBSA-088597

PATIENT
  Age: 65 Year
  Sex: Female

DRUGS (5)
  1. CIMZIA [Suspect]
     Indication: RHEUMATOID ARTHRITIS
     Dosage: TOTAL DOSAGES: 2, 400 MG, 2 INJECTIONS TWO WEEKS APART
     Route: 058
     Dates: start: 20130410, end: 2013
  2. AMITRIPTYLINE [Concomitant]
     Dosage: UNKNOWN DOSE
  3. AMLODIPINE [Concomitant]
     Dosage: UNKNOWN DOSE
  4. HYDROXYCHLOROQUINE [Concomitant]
     Dosage: UNKNOWN DOSE
  5. LEVOTHYROXINE [Concomitant]
     Dosage: UNKNOWN DOSE

REACTIONS (4)
  - Pustular psoriasis [Not Recovered/Not Resolved]
  - Inflammatory marker increased [Unknown]
  - Rash pruritic [Unknown]
  - Erythema [Unknown]
